FAERS Safety Report 7029287-6 (Version None)
Quarter: 2010Q4

REPORT INFORMATION
  Report Type: 
  Country: None (occurrence: None)
  Receive Date: 20101005
  Receipt Date: 20100921
  Transmission Date: 20110411
  Serious: Yes (Hospitalization)
  Sender: FDA-Public Use
  Company Number: PHEH2010US03848

PATIENT

DRUGS (1)
  1. AREDIA [Suspect]

REACTIONS (2)
  - BRONCHITIS [None]
  - CHEST PAIN [None]
